FAERS Safety Report 13040821 (Version 2)
Quarter: 2017Q1

REPORT INFORMATION
  Report Type: Spontaneous
  Country: US (occurrence: US)
  Receive Date: 20161219
  Receipt Date: 20170117
  Transmission Date: 20170428
  Serious: No
  Sender: FDA-Public Use
  Company Number: US-PFIZER INC-2016573196

PATIENT
  Age: 64 Year
  Sex: Female

DRUGS (2)
  1. IBRANCE [Suspect]
     Active Substance: PALBOCICLIB
     Dosage: 100
     Dates: start: 201608, end: 20170103
  2. LETROZOLE. [Suspect]
     Active Substance: LETROZOLE
     Dosage: 2.5
     Dates: start: 201608, end: 20170103

REACTIONS (3)
  - Asthenia [Unknown]
  - Depression [Unknown]
  - Dysuria [Unknown]
